FAERS Safety Report 4808182-4 (Version None)
Quarter: 2005Q4

REPORT INFORMATION
  Report Type: 
  Country: None (occurrence: None)
  Receive Date: 20051020
  Receipt Date: 20050926
  Transmission Date: 20060501
  Serious: Yes (Hospitalization)
  Sender: FDA-Public Use
  Company Number: 6017553

PATIENT
  Sex: Female

DRUGS (18)
  1. BISOPROLOL FUMARATE [Suspect]
     Dosage: 10,000 MG (10 MG, 1 IN 1 D) ORAL
     Route: 048
  2. BUMETANIDE [Suspect]
     Dosage: 1,500 MG (1,5 MG, 1 IN 1 D)
  3. RAMIPRIL [Suspect]
     Dosage: 10,000 MG (10 MG, 1 IN 1 D)
  4. DICLOFENAC SODIUM [Suspect]
     Dosage: 100,0000 MG (100 MG, 1 IN 1 D)
  5. FLOXAPEN (FLUCLOXACILLIN SODIUM) [Suspect]
     Dosage: 4,00 GM (1 GM, 4 IN 1 D) ORAL
     Route: 048
     Dates: start: 20050723, end: 20050729
  6. FLOXAPEN (FLUCLOXACILLIN SODIUM) [Suspect]
     Dosage: 4,00 GM (1 GM, 4 IN 1 D) ORAL
     Route: 048
     Dates: start: 20050722
  7. FLOXAPEN (FLUCLOXACILLIN SODIUM) [Suspect]
     Dosage: 4,00 GM (1 GM, 4 IN 1 D) ORAL
     Route: 048
     Dates: start: 20050730
  8. FLOXAPEN (FLUCLOXACILLIN SODIUM) [Suspect]
     Dosage: 4,00 GM (1 GM, 4 IN 1 D) ORAL
     Route: 048
     Dates: start: 20050730
  9. FUCIDINE CAP [Suspect]
     Dosage: 1500,00 MG (1500 MG, 1 IN 1 D) ORAL
     Route: 048
     Dates: start: 20050723
  10. LANOXIN [Suspect]
     Dosage: 250,0000 MCG (250 MCG, 1 IN 1 D)
  11. WARFARIN SODIUM [Suspect]
     Dosage: 5,00 MG (5 MG, 1 IN 1 D)
  12. CARDURA XL [Suspect]
     Dosage: 8,00 MG (8 MG, 1 IN 1 D) ORAL
     Route: 048
  13. LEVOTHYROXINE SODIUM [Suspect]
     Dosage: 50,000 MCG (50 MCG, 1 IN 1 D) ORAL
     Route: 048
  14. PANTOPRAZOLE SODIUM [Suspect]
     Dosage: 40,000 MG (40 MG, 1 IN 1 D) ORAL
     Route: 048
  15. PRAVASTATIN SODIUM [Suspect]
     Dosage: 20,000 MG (20 MG, 1 IN 1 D) ORAL
     Route: 048
  16. MOTILIUM [Suspect]
     Dosage: 20,000 MG (20 MG, 1 IN 1 D) ORAL
     Route: 048
     Dates: end: 20050729
  17. ZOFRAN [Suspect]
     Dosage: 8,00 MG (8 MG, 1 IN 1 D) ORAL
     Route: 048
  18. PROCHLORPERAZINE [Suspect]
     Dosage: 12,5000 MG (12,5 MG, 1 IN 1 D) INTRAMUSCULAR
     Route: 030
     Dates: end: 20050731

REACTIONS (5)
  - DRUG INTERACTION [None]
  - INTERNATIONAL NORMALISED RATIO INCREASED [None]
  - RENAL IMPAIRMENT [None]
  - RENAL TUBULAR NECROSIS [None]
  - THERAPEUTIC AGENT TOXICITY [None]
